FAERS Safety Report 16289811 (Version 1)
Quarter: 2019Q2

REPORT INFORMATION
  Report Type: Spontaneous
  Country: IT (occurrence: IT)
  Receive Date: 20190509
  Receipt Date: 20190509
  Transmission Date: 20190711
  Serious: Yes (Hospitalization)
  Sender: FDA-Public Use
  Company Number: IT-ACCORD-126317

PATIENT
  Age: 57 Year
  Sex: Female
  Weight: 62 kg

DRUGS (7)
  1. CISPLATIN. [Suspect]
     Active Substance: CISPLATIN
     Indication: OVARIAN NEOPLASM
     Route: 042
     Dates: start: 20181030, end: 20190325
  2. GEMCITABINE [Concomitant]
     Active Substance: GEMCITABINE\GEMCITABINE HYDROCHLORIDE
     Indication: OVARIAN NEOPLASM
     Route: 042
     Dates: start: 20181030, end: 20190325
  3. LASIX [Concomitant]
     Active Substance: FUROSEMIDE
  4. PANTOPRAZOLE AUROBINDO [Concomitant]
     Active Substance: PANTOPRAZOLE
  5. METOCLOPRAMIDE. [Concomitant]
     Active Substance: METOCLOPRAMIDE
  6. BISOPROLOL TEVA [Concomitant]
     Active Substance: BISOPROLOL
  7. PANTOPRAZOLE AUROBINDO [Concomitant]
     Active Substance: PANTOPRAZOLE

REACTIONS (5)
  - Hyperhidrosis [Unknown]
  - Tachycardia [Unknown]
  - Hypotension [Unknown]
  - Hypersensitivity [Unknown]
  - Rash [Unknown]

NARRATIVE: CASE EVENT DATE: 20190325
